FAERS Safety Report 6253234-8 (Version None)
Quarter: 2009Q2

REPORT INFORMATION
  Report Type: 
  Country: None (occurrence: None)
  Receive Date: 20090625
  Receipt Date: 20081203
  Transmission Date: 20091009
  Serious: Yes (Other)
  Sender: FDA-Public Use
  Company Number: DSU-2008-02122

PATIENT

DRUGS (1)
  1. BENICAR [Suspect]
     Indication: DRUG USE FOR UNKNOWN INDICATION
     Dosage: PER ORAL
     Route: 048

REACTIONS (1)
  - RENAL FAILURE ACUTE [None]
